FAERS Safety Report 6939100-0 (Version None)
Quarter: 2010Q3

REPORT INFORMATION
  Report Type: 
  Country: None (occurrence: None)
  Receive Date: 20100824
  Receipt Date: 20100819
  Transmission Date: 20110219
  Serious: Yes (Death, Hospitalization)
  Sender: FDA-Public Use
  Company Number: GB-AMGEN-KDC383247

PATIENT
  Sex: Male
  Weight: 68.3 kg

DRUGS (2)
  1. PANITUMUMAB [Suspect]
     Indication: COLORECTAL CANCER
     Route: 042
     Dates: start: 20091020, end: 20091216
  2. IRINOTECAN HCL [Concomitant]
     Route: 042
     Dates: start: 20091020

REACTIONS (2)
  - DEATH [None]
  - DIARRHOEA [None]
